FAERS Safety Report 16366586 (Version 1)
Quarter: 2019Q2

REPORT INFORMATION
  Report Type: Spontaneous
  Country: DE (occurrence: DE)
  Receive Date: 20190529
  Receipt Date: 20190529
  Transmission Date: 20190711
  Serious: Yes (Hospitalization)
  Sender: FDA-Public Use
  Company Number: DE-TEVA-2019-DE-1055652

PATIENT
  Sex: Female

DRUGS (8)
  1. IRINOTECAN [Suspect]
     Active Substance: IRINOTECAN
     Indication: NEUROBLASTOMA
     Dosage: AS PART OF THE RIST HGG TRIAL PROTOCOL
     Route: 065
     Dates: start: 201101, end: 201104
  2. HELIXOR A [Suspect]
     Active Substance: VISCUM ALBUM FRUITING TOP
     Indication: NEUROBLASTOMA
     Dosage: BIWEEKLY INJECTIONS, STARTING DOSE OF 1.25MG, GRADUALLY ESCALATED TO 12.5MG
     Route: 058
     Dates: start: 201104
  3. HELIXOR A [Suspect]
     Active Substance: VISCUM ALBUM FRUITING TOP
     Dosage: BIWEEKLY INJECTIONS, STARTING DOSE OF 1.25MG, GRADUALLY ESCALATED TO 12.5MG
     Route: 058
  4. DASATINIB. [Suspect]
     Active Substance: DASATINIB
     Indication: NEUROBLASTOMA
     Dosage: AS PART OF THE RIST HGG TRIAL PROTOCOL
     Route: 065
     Dates: start: 201101, end: 201104
  5. SIROLIMUS. [Suspect]
     Active Substance: SIROLIMUS
     Indication: NEUROBLASTOMA
     Dosage: AS PART OF THE RIST HGG TRIAL PROTOCOL
     Route: 065
     Dates: start: 201101, end: 201104
  6. ZOLEDRONATE [Concomitant]
     Active Substance: ZOLEDRONIC ACID
     Dosage: ADMINISTERED EVERY 4 WEEKS
     Route: 065
     Dates: start: 201101
  7. TEMOZOLOMIDE. [Suspect]
     Active Substance: TEMOZOLOMIDE
     Indication: NEUROBLASTOMA
     Dosage: AS PART OF THE RIST HGG TRIAL PROTOCOL
     Route: 065
     Dates: start: 201101, end: 201104
  8. HELIXOR A [Suspect]
     Active Substance: VISCUM ALBUM FRUITING TOP
     Dosage: BIWEEKLY INJECTIONS; DOSE REDUCED TO 5MG EVERY 4-6 WEEKS DUE TO INJECTION SITE REACTIONS
     Route: 058
     Dates: end: 201402

REACTIONS (4)
  - Nausea [Unknown]
  - Injection site erythema [Unknown]
  - Vomiting [Unknown]
  - Neutropenic infection [Unknown]

NARRATIVE: CASE EVENT DATE: 2011
